FAERS Safety Report 12219150 (Version 5)
Quarter: 2016Q3

REPORT INFORMATION
  Report Type: Report from Study
  Country: US (occurrence: US)
  Receive Date: 20160329
  Receipt Date: 20160729
  Transmission Date: 20161109
  Serious: Yes (Life-Threatening, Hospitalization, Other)
  Sender: FDA-Public Use
  Company Number: US-GILEAD-2016-0205283

PATIENT
  Age: 77 Year
  Sex: Female

DRUGS (10)
  1. ADVAIR HFA [Concomitant]
     Active Substance: FLUTICASONE PROPIONATE\SALMETEROL XINAFOATE
     Indication: CHRONIC OBSTRUCTIVE PULMONARY DISEASE
  2. SINGULAIR [Concomitant]
     Active Substance: MONTELUKAST SODIUM
     Indication: CHRONIC OBSTRUCTIVE PULMONARY DISEASE
  3. LASIX [Concomitant]
     Active Substance: FUROSEMIDE
     Indication: CARDIAC FAILURE CONGESTIVE
  4. AMBRISENTAN [Suspect]
     Active Substance: AMBRISENTAN
     Indication: PRODUCT USED FOR UNKNOWN INDICATION
     Dosage: 5 MG, QD
     Route: 065
     Dates: start: 20140804
  5. SOLU-MEDROL [Concomitant]
     Active Substance: METHYLPREDNISOLONE SODIUM SUCCINATE
     Indication: CHRONIC OBSTRUCTIVE PULMONARY DISEASE
  6. REVATIO [Concomitant]
     Active Substance: SILDENAFIL CITRATE
     Indication: CHRONIC OBSTRUCTIVE PULMONARY DISEASE
  7. SILDENAFIL. [Concomitant]
     Active Substance: SILDENAFIL
  8. CARDIZEM [Concomitant]
     Active Substance: DILTIAZEM HYDROCHLORIDE
     Indication: HYPERTENSION
  9. CARDURA [Concomitant]
     Active Substance: DOXAZOSIN MESYLATE
     Indication: HYPERTENSION
  10. DUONEB [Concomitant]
     Active Substance: ALBUTEROL SULFATE\IPRATROPIUM BROMIDE
     Indication: CHRONIC OBSTRUCTIVE PULMONARY DISEASE

REACTIONS (5)
  - Unevaluable event [Unknown]
  - Acute left ventricular failure [Recovered/Resolved]
  - Chronic obstructive pulmonary disease [Recovered/Resolved]
  - Fluid retention [Unknown]
  - Respiratory disorder [Unknown]

NARRATIVE: CASE EVENT DATE: 20160614
